FAERS Safety Report 5766598-6 (Version None)
Quarter: 2008Q2

REPORT INFORMATION
  Report Type: 
  Country: None (occurrence: None)
  Receive Date: 20080610
  Receipt Date: 20080610
  Transmission Date: 20081010
  Serious: Yes (Other)
  Sender: FDA-Public Use
  Company Number: None

PATIENT
  Age: 464 Month
  Sex: Male
  Weight: 129.7287 kg

DRUGS (4)
  1. ADDERALL 30 [Suspect]
     Indication: ACQUIRED IMMUNODEFICIENCY SYNDROME
     Dosage: 3 TABS T.I.D. PO
     Route: 048
  2. ADDERALL 30 [Suspect]
     Indication: ANTIRETROVIRAL THERAPY
     Dosage: 3 TABS T.I.D. PO
     Route: 048
  3. ADDERALL 30 [Suspect]
     Indication: MITOCHONDRIAL TOXICITY
     Dosage: 3 TABS T.I.D. PO
     Route: 048
  4. ADDERALL 30 [Suspect]
     Indication: NARCOLEPSY
     Dosage: 3 TABS T.I.D. PO
     Route: 048

REACTIONS (6)
  - ECONOMIC PROBLEM [None]
  - GAIT DISTURBANCE [None]
  - IMPAIRED DRIVING ABILITY [None]
  - IMPAIRED WORK ABILITY [None]
  - NARCOLEPSY [None]
  - PHARMACEUTICAL PRODUCT COMPLAINT [None]
